FAERS Safety Report 18654336 (Version 3)
Quarter: 2021Q1

REPORT INFORMATION
  Report Type: Spontaneous
  Country: DE (occurrence: DE)
  Receive Date: 20201223
  Receipt Date: 20210121
  Transmission Date: 20210419
  Serious: Yes (Hospitalization, Other)
  Sender: FDA-Public Use
  Company Number: NVSC2020DE306635

PATIENT
  Sex: Female
  Weight: 68 kg

DRUGS (6)
  1. URBASON [Concomitant]
     Active Substance: METHYLPREDNISOLONE
     Indication: EAR PAIN
  2. CEFUROXIME. [Concomitant]
     Active Substance: CEFUROXIME
     Indication: PRODUCT USED FOR UNKNOWN INDICATION
     Dosage: 1000 MG, QD (STOPPED OVER 5 DAYS)
     Route: 065
     Dates: start: 202003
  3. HYRIMOZ [Suspect]
     Active Substance: ADALIMUMAB-ADAZ
     Indication: POLYARTHRITIS
  4. URBASON [Concomitant]
     Active Substance: METHYLPREDNISOLONE
     Indication: TONSILLITIS
     Dosage: UNK
     Route: 065
  5. HYRIMOZ [Suspect]
     Active Substance: ADALIMUMAB-ADAZ
     Indication: PSORIATIC ARTHROPATHY
     Dosage: 40 MG, 14D
     Route: 058
     Dates: start: 20200117, end: 20200921
  6. NOVAMINSULFON [Concomitant]
     Active Substance: METAMIZOLE
     Indication: PRODUCT USED FOR UNKNOWN INDICATION
     Dosage: 25 DRP  (4 X / AS NEEDED)
     Route: 065

REACTIONS (24)
  - Arterial occlusive disease [Recovering/Resolving]
  - Pleural effusion [Recovering/Resolving]
  - Pulmonary embolism [Recovering/Resolving]
  - Bronchial wall thickening [Recovering/Resolving]
  - C-reactive protein increased [Unknown]
  - Kyphosis [Unknown]
  - Hepatic cyst [Not Recovered/Not Resolved]
  - Activated partial thromboplastin time prolonged [Recovered/Resolved]
  - Fibrin D dimer increased [Recovering/Resolving]
  - Pneumonia [Recovering/Resolving]
  - Hiatus hernia [Not Recovered/Not Resolved]
  - Blood glucose increased [Recovered/Resolved]
  - Renal cyst [Not Recovered/Not Resolved]
  - Blood bicarbonate increased [Recovered/Resolved]
  - Cardiomegaly [Recovering/Resolving]
  - Spinal osteoarthritis [Not Recovered/Not Resolved]
  - Blood cholesterol increased [Unknown]
  - Arterial thrombosis [Recovering/Resolving]
  - Chest pain [Recovering/Resolving]
  - White blood cell count increased [Recovered/Resolved]
  - Lung infiltration [Recovering/Resolving]
  - Deep vein thrombosis [Unknown]
  - High density lipoprotein increased [Unknown]
  - Hepatic steatosis [Not Recovered/Not Resolved]

NARRATIVE: CASE EVENT DATE: 20200918
